FAERS Safety Report 7655318-6 (Version None)
Quarter: 2011Q3

REPORT INFORMATION
  Report Type: 
  Country: None (occurrence: None)
  Receive Date: 20110729
  Receipt Date: 20110726
  Transmission Date: 20111222
  Serious: Yes (Hospitalization)
  Sender: FDA-Public Use
  Company Number: CIP11001840

PATIENT
  Age: 87 Year
  Sex: Female

DRUGS (2)
  1. ACTONEL [Suspect]
     Dosage: ORAL
     Route: 048
  2. FOSAMAX [Suspect]

REACTIONS (6)
  - GAIT DISTURBANCE [None]
  - HEART RATE IRREGULAR [None]
  - NEOPLASM MALIGNANT [None]
  - ATRIAL FIBRILLATION [None]
  - HYPERTENSION [None]
  - CARDIAC DISORDER [None]
